FAERS Safety Report 14123995 (Version 2)
Quarter: 2017Q4

REPORT INFORMATION
  Report Type: Spontaneous
  Country: GR (occurrence: GR)
  Receive Date: 20171025
  Receipt Date: 20171206
  Transmission Date: 20180321
  Serious: Yes (Other)
  Sender: FDA-Public Use
  Company Number: GR-PFIZER INC-2017454067

PATIENT
  Age: 57 Year
  Sex: Female

DRUGS (7)
  1. METHOTREXATE SODIUM. [Suspect]
     Active Substance: METHOTREXATE SODIUM
     Indication: JOINT EFFUSION
     Dosage: 10 MG, WEEKLY
     Dates: start: 201601
  2. ADALIMUMAB [Suspect]
     Active Substance: ADALIMUMAB
     Indication: JOINT EFFUSION
     Dosage: UNK
     Dates: start: 201601
  3. PREZOLON [Suspect]
     Active Substance: PREDNISOLONE
     Indication: JOINT EFFUSION
     Dosage: 10 MG, DAILY
     Dates: start: 201601
  4. JANUMET [Suspect]
     Active Substance: METFORMIN HYDROCHLORIDE\SITAGLIPTIN PHOSPHATE
     Indication: JOINT EFFUSION
     Dosage: UNK
     Dates: start: 201601
  5. INFLIXIMAB [Suspect]
     Active Substance: INFLIXIMAB
     Indication: JOINT EFFUSION
     Dosage: UNK
     Dates: start: 201608
  6. SALOPYRINE [Suspect]
     Active Substance: SULFASALAZINE
     Indication: JOINT EFFUSION
     Dosage: 3 G, 2X3
     Dates: start: 201608
  7. FOSAVANCE [Suspect]
     Active Substance: ALENDRONATE SODIUM\CHOLECALCIFEROL
     Indication: JOINT EFFUSION
     Dosage: 5600 IU, UNK
     Dates: start: 201601

REACTIONS (8)
  - Urinary tract infection [Unknown]
  - Sacroiliitis [Unknown]
  - Osteoporotic fracture [Unknown]
  - Fall [Unknown]
  - Pain [Unknown]
  - Immobile [Unknown]
  - Bone marrow oedema [Unknown]
  - Joint effusion [Unknown]

NARRATIVE: CASE EVENT DATE: 201607
